FAERS Safety Report 23503300 (Version 1)
Quarter: 2024Q1

REPORT INFORMATION
  Report Type: Spontaneous
  Country: US (occurrence: US)
  Receive Date: 20240208
  Receipt Date: 20240208
  Transmission Date: 20240410
  Serious: Yes (Other)
  Sender: FDA-Public Use
  Company Number: US-LUNDBECK-DKLU3073854

PATIENT
  Age: 6 Year
  Sex: Female

DRUGS (10)
  1. SABRIL [Suspect]
     Active Substance: VIGABATRIN
     Indication: Infantile spasms
     Route: 065
     Dates: start: 201804
  2. SABRIL [Suspect]
     Active Substance: VIGABATRIN
     Route: 065
  3. SABRIL [Suspect]
     Active Substance: VIGABATRIN
     Indication: Infantile spasms
     Dosage: WEEK 5
     Route: 048
  4. SABRIL [Suspect]
     Active Substance: VIGABATRIN
     Dosage: WEEK 5
     Route: 048
  5. SABRIL [Suspect]
     Active Substance: VIGABATRIN
     Dosage: WEEK 6
     Route: 048
  6. SABRIL [Suspect]
     Active Substance: VIGABATRIN
     Dosage: WEEK 6
     Route: 048
  7. SABRIL [Suspect]
     Active Substance: VIGABATRIN
     Dosage: WEEK 7 1/2 TAB AT BEDTIME AND THEN STOP
     Route: 048
  8. AFINITOR DISPERZ [Concomitant]
     Active Substance: EVEROLIMUS
     Indication: Product used for unknown indication
     Route: 065
  9. EVEROLIMUS [Concomitant]
     Active Substance: EVEROLIMUS
     Indication: Product used for unknown indication
     Route: 048
  10. EPIDIOLEX [Concomitant]
     Active Substance: CANNABIDIOL
     Indication: Product used for unknown indication
     Route: 048

REACTIONS (1)
  - Seizure [Unknown]
